FAERS Safety Report 7159493-1 (Version None)
Quarter: 2010Q4

REPORT INFORMATION
  Report Type: 
  Country: None (occurrence: None)
  Receive Date: 20101214
  Receipt Date: 20100914
  Transmission Date: 20110411
  Serious: No
  Sender: FDA-Public Use
  Company Number: US-ASTRAZENECA-2010SE43096

PATIENT
  Age: 76 Year
  Sex: Male

DRUGS (2)
  1. CRESTOR [Suspect]
     Indication: PROPHYLAXIS
     Route: 048
     Dates: start: 20100801
  2. UROXATRAL [Concomitant]

REACTIONS (2)
  - DRUG DOSE OMISSION [None]
  - NAUSEA [None]
